FAERS Safety Report 9264439 (Version 2)
Quarter: 2013Q3

REPORT INFORMATION
  Report Type: Spontaneous
  Country: US (occurrence: US)
  Receive Date: 20130501
  Receipt Date: 20130703
  Transmission Date: 20140515
  Serious: Yes (Hospitalization)
  Sender: FDA-Public Use
  Company Number: US-B.I. PHARMACEUTICALS,INC./RIDGEFIELD-2013-BI-11570BP

PATIENT
  Age: 69 Year
  Sex: Male
  Weight: 80 kg

DRUGS (24)
  1. PRADAXA [Suspect]
     Indication: ATRIAL FIBRILLATION
     Dosage: 300 MG
     Route: 048
     Dates: start: 20111223, end: 20120606
  2. PRADAXA [Suspect]
     Indication: AORTIC ANEURYSM
  3. MICARDIS HCT TABLETS [Suspect]
     Indication: HYPERTENSION
     Route: 048
  4. LIPITOR [Concomitant]
     Indication: HYPERLIPIDAEMIA
     Dosage: 40 MG
     Route: 048
  5. DOXYCYCLINE [Concomitant]
     Dosage: 200 MG
     Route: 048
  6. CLONIDINE [Concomitant]
     Indication: HYPERTENSION
     Dosage: 0.6 MG
     Route: 048
  7. LEVOTHYROXINE [Concomitant]
     Indication: HYPERTHYROIDISM
     Dosage: 0.1 MG
     Route: 048
  8. METOPROLOL [Concomitant]
     Indication: HYPERTENSION
     Dosage: 200 MG
     Route: 048
  9. METOPROLOL [Concomitant]
     Indication: HEART RATE ABNORMAL
  10. GLUCOPHAGE [Concomitant]
     Indication: DIABETES MELLITUS
     Dosage: 500 MG
     Route: 048
  11. TOPROL XL [Concomitant]
     Indication: HYPERTENSION
     Dosage: FORMULATION: CR TABLET, DOSE: 1/2 TABLET
     Route: 048
  12. TOPROL XL [Concomitant]
     Indication: HEART RATE
  13. MICARDIS HCT [Concomitant]
     Indication: HYPERTENSION
     Dosage: STRENGTH: 80-25 MG, DOSE:80-25 MG ONCE DAILY
     Route: 048
  14. NORVASC [Concomitant]
     Indication: HYPERTENSION
     Dosage: 10 MG
     Route: 048
  15. CLONIDINE HCL [Concomitant]
     Indication: HYPERTENSION
     Dosage: 0.6 MG
     Route: 048
  16. LIPITOR [Concomitant]
     Indication: BLOOD CHOLESTEROL INCREASED
     Dosage: 80 MG
     Route: 048
  17. LOVAZA [Concomitant]
     Indication: BLOOD TRIGLYCERIDES
     Dosage: DOSE: 4 PO QD OR 2 PO BID
     Route: 048
  18. LOVAZA [Concomitant]
     Indication: BLOOD CHOLESTEROL
  19. KLOR-CON [Concomitant]
     Dosage: FORMULATION: CR-TAB
     Route: 048
  20. SYNTHROID [Concomitant]
     Indication: HYPOTHYROIDISM
     Dosage: 125 MCG
     Route: 048
  21. ANDROGEL [Concomitant]
     Indication: DRY SKIN
     Dosage: STRENGTH: 1.62% DOSE: 2 PUMPS
     Route: 061
  22. ASPIRIN [Concomitant]
     Dosage: 81 MG
     Route: 048
  23. MOBIC [Concomitant]
     Indication: PAIN
     Dosage: 7.5 MG
     Route: 048
  24. ZOSTAVAX IMMUNIZATION [Concomitant]
     Indication: HERPES ZOSTER

REACTIONS (7)
  - Aortic aneurysm rupture [Recovered/Resolved]
  - Pain [Unknown]
  - Post procedural infection [Recovered/Resolved]
  - Aortic aneurysm [Recovered/Resolved]
  - Diabetes mellitus [Not Recovered/Not Resolved]
  - Basedow^s disease [Unknown]
  - Aortic aneurysm rupture [Recovered/Resolved]
